FAERS Safety Report 9715014 (Version 1)
Quarter: 2013Q4

REPORT INFORMATION
  Report Type: Spontaneous
  Country: US (occurrence: US)
  Receive Date: 20131126
  Receipt Date: 20131126
  Transmission Date: 20140711
  Serious: No
  Sender: FDA-Public Use
  Company Number: US-NOVEN-13US007748

PATIENT
  Sex: Female

DRUGS (2)
  1. MINIVELLE [Suspect]
     Indication: HOT FLUSH
     Dosage: 0.05 MG/DAY, 2/WK
     Route: 062
     Dates: start: 201307
  2. ESTRADIOL                          /00045402/ [Concomitant]
     Indication: HOT FLUSH
     Dosage: UNK
     Route: 061

REACTIONS (3)
  - Drug dose omission [Not Recovered/Not Resolved]
  - Product quality issue [Recovered/Resolved]
  - No adverse event [None]
